FAERS Safety Report 11428604 (Version 1)
Quarter: 2015Q3

REPORT INFORMATION
  Report Type: Spontaneous
  Country: US (occurrence: US)
  Receive Date: 20150828
  Receipt Date: 20150828
  Transmission Date: 20151125
  Serious: No
  Sender: FDA-Public Use
  Company Number: US-ROCHE-1223960

PATIENT
  Age: 54 Year
  Sex: Male
  Weight: 99.88 kg

DRUGS (5)
  1. PEGASYS [Suspect]
     Active Substance: PEGINTERFERON ALFA-2A
     Indication: CHRONIC HEPATITIS C
     Route: 058
     Dates: start: 20130105
  2. COPEGUS [Suspect]
     Active Substance: RIBAVIRIN
     Indication: CHRONIC HEPATITIS C
     Dosage: IN 2 DIVIDED DOSES
     Route: 048
     Dates: start: 20130105
  3. VICTRELIS [Suspect]
     Active Substance: BOCEPREVIR
     Indication: CHRONIC HEPATITIS C
     Dosage: WEEK 5
     Route: 048
     Dates: start: 20130202
  4. GABAPENTIN. [Concomitant]
     Active Substance: GABAPENTIN
  5. COPEGUS [Suspect]
     Active Substance: RIBAVIRIN
     Route: 048

REACTIONS (9)
  - Dyspnoea [Unknown]
  - Vomiting [Recovered/Resolved]
  - Pyrexia [Recovering/Resolving]
  - Neutrophil count decreased [Unknown]
  - Nausea [Recovering/Resolving]
  - Red blood cell count decreased [Unknown]
  - Anaemia [Unknown]
  - Irritability [Unknown]
  - Depression [Unknown]

NARRATIVE: CASE EVENT DATE: 20130511
